FAERS Safety Report 26130935 (Version 1)
Quarter: 2025Q4

REPORT INFORMATION
  Report Type: Spontaneous
  Country: US (occurrence: US)
  Receive Date: 20251208
  Receipt Date: 20251208
  Transmission Date: 20260117
  Serious: Yes (Other)
  Sender: GLAXOSMITHKLINE
  Company Number: US-GSK-US2025156765

PATIENT
  Sex: Female

DRUGS (1)
  1. BREO ELLIPTA [Suspect]
     Active Substance: FLUTICASONE FUROATE\VILANTEROL TRIFENATATE
     Indication: Asthma
     Dosage: 100/25 MCG INH POWDER 30 DS NDPI TRD PACK X 1

REACTIONS (3)
  - Glaucoma [Unknown]
  - Paranasal sinus inflammation [Not Recovered/Not Resolved]
  - Osteoporosis [Not Recovered/Not Resolved]
